FAERS Safety Report 25860232 (Version 1)
Quarter: 2025Q3

REPORT INFORMATION
  Report Type: Spontaneous
  Country: US (occurrence: US)
  Receive Date: 20250929
  Receipt Date: 20250929
  Transmission Date: 20251020
  Serious: No
  Sender: MYLAN
  Company Number: US-MYLANLABS-2025M1077517

PATIENT
  Age: 47 Year
  Sex: Female
  Weight: 61.23 kg

DRUGS (3)
  1. ESTRADIOL TRANSDERMAL SYSTEM [Suspect]
     Active Substance: ESTRADIOL
     Indication: Hormone replacement therapy
     Dosage: 0.05 MILLIGRAM, QD (PER DAY, TWICE WEEKLY)
     Dates: start: 202508
  2. PROGESTERONE [Concomitant]
     Active Substance: PROGESTERONE
  3. MINOXIDIL [Concomitant]
     Active Substance: MINOXIDIL

REACTIONS (7)
  - Alopecia [Unknown]
  - Night sweats [Unknown]
  - Mood swings [Unknown]
  - Dizziness [Unknown]
  - Off label use [Unknown]
  - Product adhesion issue [Unknown]
  - Product quality issue [Unknown]

NARRATIVE: CASE EVENT DATE: 20250801
